FAERS Safety Report 5888295-9 (Version None)
Quarter: 2008Q3

REPORT INFORMATION
  Report Type: 
  Country: None (occurrence: None)
  Receive Date: 20080918
  Receipt Date: 20071011
  Transmission Date: 20090109
  Serious: Yes (Disabling)
  Sender: FDA-Public Use
  Company Number: IT-ROCHE-571045

PATIENT
  Sex: Male
  Weight: 74 kg

DRUGS (2)
  1. PEGASYS [Suspect]
     Dosage: STRENGHT: 180, DOSE: 180.
     Route: 065
     Dates: start: 20070427
  2. RIBAVIRIN [Suspect]
     Dosage: DOSE: 1200.
     Route: 065
     Dates: start: 20070427

REACTIONS (1)
  - NEPHROLITHIASIS [None]
